FAERS Safety Report 5167652-2 (Version None)
Quarter: 2006Q4

REPORT INFORMATION
  Report Type: 
  Country: None (occurrence: None)
  Receive Date: 20061201
  Receipt Date: 20061201
  Transmission Date: 20070319
  Serious: Yes (Disabling, Other)
  Sender: FDA-Public Use
  Company Number: None

PATIENT
  Age: 37 Year
  Sex: Female
  Weight: 102.5129 kg

DRUGS (2)
  1. KETEK [Suspect]
     Indication: PNEUMONIA
     Dosage: 1 PILL ORALLY 2 TIMES DAILY PO
     Route: 048
     Dates: start: 20060813, end: 20060818
  2. KETEK [Suspect]
     Indication: SINUSITIS
     Dosage: 1 PILL ORALLY 2 TIMES DAILY PO
     Route: 048
     Dates: start: 20060813, end: 20060818

REACTIONS (7)
  - AMNESIA [None]
  - ANGINA PECTORIS [None]
  - MASTICATION DISORDER [None]
  - MUSCLE FATIGUE [None]
  - MUSCULAR WEAKNESS [None]
  - VERTIGO [None]
  - VISION BLURRED [None]
